FAERS Safety Report 6562150-3 (Version None)
Quarter: 2010Q1

REPORT INFORMATION
  Report Type: 
  Country: None (occurrence: None)
  Receive Date: 20100130
  Receipt Date: 20091228
  Transmission Date: 20100710
  Serious: No
  Sender: FDA-Public Use
  Company Number: US-ABBOTT-09P-163-0603790-00

PATIENT
  Sex: Female
  Weight: 83.99 kg

DRUGS (3)
  1. HUMIRA [Suspect]
     Indication: CROHN'S DISEASE
     Route: 058
     Dates: start: 20081001
  2. PREVACID [Concomitant]
     Indication: GASTROOESOPHAGEAL REFLUX DISEASE
     Route: 048
     Dates: start: 20091001
  3. ZANTAC [Concomitant]
     Indication: GASTROOESOPHAGEAL REFLUX DISEASE
     Dates: end: 20090930

REACTIONS (11)
  - ABDOMINAL PAIN [None]
  - GAIT DISTURBANCE [None]
  - INJECTION SITE ERYTHEMA [None]
  - INJECTION SITE PAIN [None]
  - INJECTION SITE PRURITUS [None]
  - INJECTION SITE REACTION [None]
  - INJECTION SITE SWELLING [None]
  - INJECTION SITE URTICARIA [None]
  - INJECTION SITE WARMTH [None]
  - LIGAMENT INJURY [None]
  - VAGINAL HAEMORRHAGE [None]
